FAERS Safety Report 8866156 (Version 1)
Quarter: 2012Q4

REPORT INFORMATION
  Report Type: 
  Country: US (occurrence: US)
  Receive Date: 20121025
  Receipt Date: 20121025
  Transmission Date: 20130627
  Serious: Yes (Other)
  Sender: FDA-Public Use
  Company Number: US-FRI-1000039729

PATIENT
  Sex: Female

DRUGS (11)
  1. SAVELLA [Suspect]
     Indication: FIBROMYALGIA
     Dosage: 25 mg
     Route: 048
     Dates: start: 20120813, end: 20120816
  2. SAVELLA [Suspect]
     Dosage: 50 mg
     Route: 048
  3. VAGIFEM [Concomitant]
     Dosage: 1.4286 mg
  4. BACLOFEN [Concomitant]
     Dosage: 10 ml
  5. BACLOFEN [Concomitant]
     Dosage: 5 ml
  6. LYRICA [Concomitant]
     Dosage: 2 tablets
  7. HYDROXYCHLOROQUINE [Concomitant]
     Dosage: 400 mg
  8. TOPIRAMATE [Concomitant]
     Dosage: 100 mg
  9. VITAMIN D2 [Concomitant]
     Dosage: 0.1786 mg
  10. LEVOTHYROXINE [Concomitant]
     Dosage: 125 mcg
  11. SIMVASTATIN [Concomitant]
     Dosage: 20 mg

REACTIONS (13)
  - Ill-defined disorder [Unknown]
  - Somnolence [Unknown]
  - Asthenia [Unknown]
  - Ill-defined disorder [Unknown]
  - Decreased appetite [Unknown]
  - Fatigue [Unknown]
  - Headache [Unknown]
  - Dizziness [Unknown]
  - Fall [Unknown]
  - Pain [Unknown]
  - Excoriation [Unknown]
  - Lymphoedema [Unknown]
  - White blood cell count decreased [Unknown]
